FAERS Safety Report 11663353 (Version 4)
Quarter: 2016Q1

REPORT INFORMATION
  Report Type: Report from Study
  Country: BR (occurrence: BR)
  Receive Date: 20151027
  Receipt Date: 20160310
  Transmission Date: 20160525
  Serious: Yes (Other)
  Sender: FDA-Public Use
  Company Number: BR-ROCHE-1591139

PATIENT
  Sex: Female
  Weight: 89.5 kg

DRUGS (17)
  1. MABTHERA [Suspect]
     Active Substance: RITUXIMAB
     Indication: RHEUMATOID ARTHRITIS
     Dosage: ON 30/DEC/2014, RECEIVED THE LAST DOSE FOR RITUXIMAB
     Route: 042
     Dates: start: 20141211
  2. PARACETAMOL [Concomitant]
     Active Substance: ACETAMINOPHEN
     Indication: PAIN
     Route: 065
  3. METHOTREXATE [Concomitant]
     Active Substance: METHOTREXATE
     Dosage: 3 TABLETS IN THE MORNING AND AT NIGHT ON WEDNESDAY
     Route: 065
  4. AMITRIPTYLINE [Concomitant]
     Active Substance: AMITRIPTYLINE
     Indication: DEPRESSION
     Dosage: 2 TABLETS AT NIGHT FOR DEPRESSION AND AS A SLEEP
     Route: 065
  5. ATENOLOL. [Concomitant]
     Active Substance: ATENOLOL
     Indication: HYPERTENSION
     Dosage: IN THE MORNING
     Route: 065
  6. FOLIC ACID. [Concomitant]
     Active Substance: FOLIC ACID
     Indication: RHEUMATOID ARTHRITIS
     Dosage: 1 TABLET ON TUESDAY AND 1 TABLET ON THURSDAY
     Route: 065
  7. OMEPRAZOLE. [Concomitant]
     Active Substance: OMEPRAZOLE
     Dosage: 30 MINUTES AFTER ALL THE DRUGS IN THE MORNING, 1 TABLET IN THE MORNING AND 1 TABLET AT NIGHT
     Route: 065
  8. VYTORIN [Concomitant]
     Active Substance: EZETIMIBE\SIMVASTATIN
     Indication: BLOOD CHOLESTEROL INCREASED
     Dosage: AT NIGHT?EZETIMIBE 10 MG/ SIMVASTATIN 10 MG
     Route: 065
  9. HYDROFLUX [Concomitant]
  10. ACECLOFENAC [Concomitant]
     Active Substance: ACECLOFENAC
     Dosage: AT NIGHT
     Route: 065
  11. CEBRALAT [Concomitant]
     Active Substance: CILOSTAZOL
     Dosage: 1 TABLET IN THE MORNING AND 1 TABLET AT NIGHT
     Route: 065
  12. LOSARTAN. [Concomitant]
     Active Substance: LOSARTAN
     Indication: HYPERTENSION
     Dosage: IN THE MORNING
     Route: 065
  13. PREDNISONE. [Suspect]
     Active Substance: PREDNISONE
     Indication: RHEUMATOID ARTHRITIS
     Dosage: 1 TABLET IN MORNING 1 TABLET AT NIGHT
     Route: 065
  14. IBUPROFEN. [Concomitant]
     Active Substance: IBUPROFEN
     Indication: PAIN
     Route: 065
  15. LISADOR [Concomitant]
     Active Substance: DIPYRONE\PROMETHAZINE HYDROCHLORIDE
  16. HIDROMED [Concomitant]
     Active Substance: HYDROCHLOROTHIAZIDE
     Route: 065
  17. PREDNISOLONE. [Concomitant]
     Active Substance: PREDNISOLONE
     Indication: RHEUMATOID ARTHRITIS
     Dosage: 1 TABLET IN MORNING AND AT NIGHT
     Route: 065

REACTIONS (7)
  - Pain [Unknown]
  - Mobility decreased [Not Recovered/Not Resolved]
  - Rheumatoid arthritis [Not Recovered/Not Resolved]
  - Rash erythematous [Unknown]
  - Skin ulcer [Recovered/Resolved]
  - Pyrexia [Unknown]
  - Foot deformity [Not Recovered/Not Resolved]
